FAERS Safety Report 12831043 (Version 2)
Quarter: 2017Q1

REPORT INFORMATION
  Report Type: Report from Study
  Country: AR (occurrence: AR)
  Receive Date: 20161007
  Receipt Date: 20170127
  Transmission Date: 20170428
  Serious: Yes (Death, Hospitalization)
  Sender: FDA-Public Use
  Company Number: AR-B.I. PHARMACEUTICALS,INC./RIDGEFIELD-2016-BI-11958BI

PATIENT
  Age: 68 Year
  Sex: Female
  Weight: 65 kg

DRUGS (8)
  1. ENALAPRIL [Concomitant]
     Active Substance: ENALAPRIL
     Indication: HYPERTENSION
     Route: 048
     Dates: start: 2010, end: 20150314
  2. OMEPRAZOLE. [Concomitant]
     Active Substance: OMEPRAZOLE
     Indication: PROPHYLAXIS
     Route: 048
     Dates: start: 20141002, end: 20150314
  3. GLIBENCLAMIDE [Concomitant]
     Active Substance: GLYBURIDE
     Indication: TYPE 2 DIABETES MELLITUS
     Route: 048
     Dates: start: 2011, end: 20150314
  4. IBUPROFENO [Concomitant]
     Active Substance: IBUPROFEN
     Indication: RHEUMATOID ARTHRITIS
     Route: 048
     Dates: start: 1994, end: 20150314
  5. PLATSUL [Concomitant]
     Indication: SKIN ULCER
     Dosage: ROUTE: SKIN; DAILY DOSE: 1 APPLICATION
     Route: 050
     Dates: start: 201404, end: 20150314
  6. PERVINOX [Concomitant]
     Indication: SKIN ULCER
     Dosage: ROUTE: SKIN; DAILY DOSE: 1 APPLICATION
     Route: 050
     Dates: start: 201404, end: 20150314
  7. BLINDED LINAGLIPTIN [Suspect]
     Active Substance: LINAGLIPTIN
     Indication: TYPE 2 DIABETES MELLITUS
     Route: 048
     Dates: start: 20141028
  8. METFORMIN [Concomitant]
     Active Substance: METFORMIN HYDROCHLORIDE
     Indication: TYPE 2 DIABETES MELLITUS
     Route: 048
     Dates: start: 2011, end: 20150314

REACTIONS (2)
  - Dehydration [Fatal]
  - Hypotension [Unknown]

NARRATIVE: CASE EVENT DATE: 20150311
